FAERS Safety Report 18388609 (Version 2)
Quarter: 2020Q4

REPORT INFORMATION
  Report Type: Spontaneous
  Country: US (occurrence: US)
  Receive Date: 20201015
  Receipt Date: 20201027
  Transmission Date: 20210114
  Serious: Yes (Other)
  Sender: FDA-Public Use
  Company Number: US-TEVA-2020-US-1837471

PATIENT
  Age: 44 Year
  Sex: Female

DRUGS (5)
  1. DOXORUBICIN [Suspect]
     Active Substance: DOXORUBICIN
     Indication: ANGIOSARCOMA METASTATIC
     Dosage: ON DAY 1 TO 3; COMPLETED 6 CYCLES
     Route: 065
  2. DOXORUBICIN [Suspect]
     Active Substance: DOXORUBICIN
     Indication: MALIGNANT PERICARDIAL NEOPLASM
  3. IFOSFAMIDE. [Suspect]
     Active Substance: IFOSFAMIDE
     Indication: MALIGNANT PERICARDIAL NEOPLASM
  4. IFOSFAMIDE. [Suspect]
     Active Substance: IFOSFAMIDE
     Indication: ANGIOSARCOMA METASTATIC
     Dosage: ON DAY 1 TO 5; COMPLETED 6 CYCLES
     Route: 065
  5. MESNA. [Concomitant]
     Active Substance: MESNA
     Dosage: COMPLETED 6 CYCLES
     Route: 065

REACTIONS (1)
  - Febrile neutropenia [Unknown]
